FAERS Safety Report 16430798 (Version 1)
Quarter: 2019Q2

REPORT INFORMATION
  Report Type: Spontaneous
  Country: US (occurrence: US)
  Receive Date: 20190614
  Receipt Date: 20190614
  Transmission Date: 20190711
  Serious: Yes (Death, Hospitalization, Other)
  Sender: FDA-Public Use
  Company Number: US-ASTELLAS-2019US024378

PATIENT
  Age: 65 Year
  Sex: Female

DRUGS (2)
  1. TACROLIMUS. [Suspect]
     Active Substance: TACROLIMUS
     Indication: RENAL TRANSPLANT
     Dosage: UNK, UNKNOWN FREQ.
     Route: 065
  2. TACROLIMUS. [Suspect]
     Active Substance: TACROLIMUS
     Dosage: UNK UNK, UNKNOWN FREQ.
     Route: 065

REACTIONS (11)
  - Haemophagocytic lymphohistiocytosis [Unknown]
  - Mental status changes [Unknown]
  - Metabolic acidosis [Unknown]
  - Septic shock [Unknown]
  - Post transplant lymphoproliferative disorder [Unknown]
  - Condition aggravated [Unknown]
  - Acute respiratory distress syndrome [Unknown]
  - Epstein-Barr virus infection [Unknown]
  - Lymphadenopathy [Unknown]
  - Organ failure [Unknown]
  - Death [Fatal]
